FAERS Safety Report 7575397-4 (Version None)
Quarter: 2011Q2

REPORT INFORMATION
  Report Type: 
  Country: None (occurrence: None)
  Receive Date: 20110627
  Receipt Date: 20110621
  Transmission Date: 20111010
  Serious: Yes (Hospitalization)
  Sender: FDA-Public Use
  Company Number: PHHY2011US50454

PATIENT
  Sex: Male
  Weight: 74.83 kg

DRUGS (1)
  1. EXJADE [Suspect]
     Indication: SICKLE CELL ANAEMIA
     Dosage: 2000 MG, QD
     Route: 048
     Dates: start: 20060324

REACTIONS (5)
  - DIABETES MELLITUS [None]
  - PANCREATIC INSUFFICIENCY [None]
  - HEPATOTOXICITY [None]
  - IRON OVERLOAD [None]
  - CARDIAC FAILURE CONGESTIVE [None]
